FAERS Safety Report 6437176-0 (Version None)
Quarter: 2009Q4

REPORT INFORMATION
  Report Type: 
  Country: None (occurrence: None)
  Receive Date: 20091112
  Receipt Date: 20091104
  Transmission Date: 20100525
  Serious: Yes (Hospitalization)
  Sender: FDA-Public Use
  Company Number: BR-ROCHE-495872

PATIENT
  Age: 53 Year
  Sex: Male

DRUGS (2)
  1. PEGASYS [Suspect]
     Dosage: STRENGTH REPORTED AS 180 MCG/0.5 ML. ADMINISTERED PER WEEK.
     Route: 058
     Dates: start: 20060901
  2. RIBAVIRIN [Suspect]
     Route: 065

REACTIONS (1)
  - FIBRINOUS BRONCHITIS [None]
